FAERS Safety Report 8387008-9 (Version None)
Quarter: 2012Q2

REPORT INFORMATION
  Report Type: 
  Country: None (occurrence: None)
  Receive Date: 20120525
  Receipt Date: 20120523
  Transmission Date: 20120825
  Serious: Yes (Other)
  Sender: FDA-Public Use
  Company Number: JP-PFIZER INC-2010138432

PATIENT
  Sex: Male

DRUGS (10)
  1. LYRICA [Suspect]
     Dosage: 600MG DAILY
     Route: 048
  2. ROHYPNOL [Concomitant]
  3. CLONAZEPAM [Concomitant]
  4. LYRICA [Suspect]
     Indication: FIBROMYALGIA
     Dosage: 300 MG, 2X/DAY
     Route: 048
     Dates: start: 20100701, end: 20110101
  5. LYRICA [Suspect]
     Dosage: 450MG DAILY
     Route: 048
  6. CYMBALTA [Concomitant]
  7. SELBEX [Concomitant]
  8. LYRICA [Suspect]
     Dosage: 300MG DAILY
     Route: 048
  9. LYRICA [Suspect]
     Dosage: 600MG DAILY
     Route: 048
     Dates: start: 20120101
  10. GABAPENTIN [Suspect]
     Dosage: 800 MG, 3X/DAY
     Route: 048
     Dates: start: 20100701

REACTIONS (11)
  - HEPATIC FUNCTION ABNORMAL [None]
  - HYPOAESTHESIA ORAL [None]
  - BLOOD TRIGLYCERIDES INCREASED [None]
  - BONE DISORDER [None]
  - DYSGEUSIA [None]
  - SOMNOLENCE [None]
  - DIZZINESS [None]
  - LIVER FUNCTION TEST ABNORMAL [None]
  - WEIGHT INCREASED [None]
  - BLOOD CHOLESTEROL INCREASED [None]
  - DYSARTHRIA [None]
